FAERS Safety Report 7986240-3 (Version None)
Quarter: 2011Q4

REPORT INFORMATION
  Report Type: 
  Country: None (occurrence: None)
  Receive Date: 20111216
  Receipt Date: 20110629
  Transmission Date: 20120403
  Serious: No
  Sender: FDA-Public Use
  Company Number: US-BRISTOL-MYERS SQUIBB COMPANY-15863087

PATIENT

DRUGS (1)
  1. ABILIFY [Suspect]
     Indication: MAJOR DEPRESSION
     Dosage: AVERAGE OF 25 MG DAILY AS AN ADJUNCT,AVG LENGTH OF THERAPY : 3 YEARS

REACTIONS (1)
  - TARDIVE DYSKINESIA [None]
